FAERS Safety Report 5799396-8 (Version None)
Quarter: 2008Q3

REPORT INFORMATION
  Report Type: 
  Country: None (occurrence: None)
  Receive Date: 20080703
  Receipt Date: 20080624
  Transmission Date: 20090109
  Serious: Yes (Other)
  Sender: FDA-Public Use
  Company Number: US-PFIZER INC-2008054091

PATIENT
  Age: 51 Year
  Sex: Male
  Weight: 136.1 kg

DRUGS (4)
  1. CHANTIX [Suspect]
     Indication: SMOKING CESSATION THERAPY
     Dates: start: 20080101, end: 20080101
  2. INDOCIN [Concomitant]
     Indication: PAIN
  3. ANTIHYPERTENSIVES [Concomitant]
     Indication: HYPERTENSION
  4. ALL OTHER THERAPEUTIC PRODUCTS [Concomitant]
     Indication: BLOOD CHOLESTEROL INCREASED

REACTIONS (5)
  - AGGRESSION [None]
  - BLOOD GLUCOSE INCREASED [None]
  - DIABETES MELLITUS [None]
  - IRRITABILITY [None]
  - WITHDRAWAL SYNDROME [None]
